FAERS Safety Report 7216340-7 (Version None)
Quarter: 2011Q1

REPORT INFORMATION
  Report Type: 
  Country: None (occurrence: None)
  Receive Date: 20110107
  Receipt Date: 20101225
  Transmission Date: 20110831
  Serious: Yes (Other)
  Sender: FDA-Public Use
  Company Number: US-PFIZER INC-2011003804

PATIENT
  Sex: Male

DRUGS (1)
  1. IBUPROFEN [Suspect]
     Dosage: UNK ML, UNK
     Route: 048

REACTIONS (4)
  - PRODUCT QUALITY ISSUE [None]
  - LETHARGY [None]
  - RASH [None]
  - ASTHMA [None]
